FAERS Safety Report 13819052 (Version 2)
Quarter: 2018Q1

REPORT INFORMATION
  Report Type: Report from Study
  Country: US (occurrence: US)
  Receive Date: 20170731
  Receipt Date: 20180201
  Transmission Date: 20180508
  Serious: No
  Sender: FDA-Public Use
  Company Number: US-EXELIXIS-CABO-16007678

PATIENT
  Age: 45 Year
  Sex: Male

DRUGS (27)
  1. SENNA LAXATIVE [Concomitant]
     Active Substance: SENNOSIDES
  2. IBUPROFEN. [Concomitant]
     Active Substance: IBUPROFEN
  3. PROCTOZONE HC [Concomitant]
     Active Substance: HYDROCORTISONE
  4. CLINDAMYCIN. [Concomitant]
     Active Substance: CLINDAMYCIN
  5. RANITIDINE. [Concomitant]
     Active Substance: RANITIDINE
  6. CABOMETYX [Suspect]
     Active Substance: CABOZANTINIB S-MALATE
     Indication: RENAL CANCER
     Dosage: 60 MG, QD
     Route: 048
     Dates: start: 20161111, end: 201612
  7. RADIOTHERAPY [Concomitant]
     Active Substance: RADIATION THERAPY
  8. PROMETHAZINE [Concomitant]
     Active Substance: PROMETHAZINE\PROMETHAZINE HYDROCHLORIDE
  9. OXYCODONE W/APAP [Concomitant]
     Active Substance: ACETAMINOPHEN\OXYCODONE HYDROCHLORIDE
  10. AZITHROMYCIN ANHYDROUS. [Concomitant]
     Active Substance: AZITHROMYCIN ANHYDROUS
  11. FERROUS SULFATE. [Concomitant]
     Active Substance: FERROUS SULFATE
  12. GABAPENTIN. [Concomitant]
     Active Substance: GABAPENTIN
  13. PREDNISONE. [Concomitant]
     Active Substance: PREDNISONE
  14. OMEPRAZOLE. [Concomitant]
     Active Substance: OMEPRAZOLE
  15. NYSTATIN W/TRIAMCINOLONE [Concomitant]
  16. DOCQLACE [Concomitant]
     Active Substance: DOCUSATE SODIUM
  17. DRONABINOL. [Concomitant]
     Active Substance: DRONABINOL
  18. A-HYDROCORT [Concomitant]
     Active Substance: HYDROCORTISONE SODIUM SUCCINATE
  19. VALACYCLOVIR [Concomitant]
     Active Substance: VALACYCLOVIR HYDROCHLORIDE
  20. CABOMETYX [Suspect]
     Active Substance: CABOZANTINIB S-MALATE
     Indication: NEOPLASM MALIGNANT
     Dosage: 40 MG, QD
     Route: 048
     Dates: start: 201612
  21. HYDROCODONE BITARTRATE AND ACETAMINOPHEN [Concomitant]
     Active Substance: ACETAMINOPHEN\HYDROCODONE BITARTRATE
  22. MORPHINE SULFATE. [Concomitant]
     Active Substance: MORPHINE SULFATE
  23. SERTRALINE [Concomitant]
     Active Substance: SERTRALINE HYDROCHLORIDE
  24. VOTRIENT [Concomitant]
     Active Substance: PAZOPANIB HYDROCHLORIDE
  25. AQUANIL [Concomitant]
  26. TRIAMCINOLONE [Concomitant]
     Active Substance: TRIAMCINOLONE
  27. MIRTAZAPINE. [Concomitant]
     Active Substance: MIRTAZAPINE

REACTIONS (4)
  - Skin disorder [Unknown]
  - Diarrhoea [Unknown]
  - Nausea [Not Recovered/Not Resolved]
  - Malignant neoplasm progression [Unknown]

NARRATIVE: CASE EVENT DATE: 201611
